FAERS Safety Report 22604381 (Version 1)
Quarter: 2023Q2

REPORT INFORMATION
  Report Type: Report from Study
  Country: CA (occurrence: CA)
  Receive Date: 20230615
  Receipt Date: 20230615
  Transmission Date: 20230722
  Serious: Yes (Hospitalization, Other)
  Sender: FDA-Public Use
  Company Number: CA-JNJFOC-20230624639

PATIENT
  Age: 18 Year
  Sex: Female

DRUGS (1)
  1. REMICADE [Suspect]
     Active Substance: INFLIXIMAB
     Indication: Juvenile idiopathic arthritis
     Route: 042

REACTIONS (6)
  - Pneumonia [Unknown]
  - Septic shock [Recovered/Resolved]
  - Multiple organ dysfunction syndrome [Recovering/Resolving]
  - Thrombosis [Unknown]
  - Urinary tract infection [Unknown]
  - Gastroenteritis viral [Unknown]

NARRATIVE: CASE EVENT DATE: 20230101
